FAERS Safety Report 4426304-4 (Version None)
Quarter: 2004Q3

REPORT INFORMATION
  Report Type: 
  Country: None (occurrence: None)
  Receive Date: 20040811
  Receipt Date: 20040727
  Transmission Date: 20050211
  Serious: Yes (Hospitalization)
  Sender: FDA-Public Use
  Company Number: 04P-167-0268669-00

PATIENT
  Sex: Female

DRUGS (5)
  1. KALETRA [Suspect]
     Indication: HIV INFECTION
     Dates: start: 20031118
  2. ZIDOVUDINE W/LAMIVUDINE [Concomitant]
  3. LAMIVUDINE [Concomitant]
  4. ABACAVIR [Concomitant]
  5. NEVIRAPINE [Concomitant]

REACTIONS (4)
  - BLOOD CREATININE INCREASED [None]
  - BLOOD UREA INCREASED [None]
  - DRUG EXPOSURE DURING PREGNANCY [None]
  - NAIL PIGMENTATION [None]
